FAERS Safety Report 25278858 (Version 1)
Quarter: 2025Q2

REPORT INFORMATION
  Report Type: Spontaneous
  Country: US (occurrence: None)
  Receive Date: 20250507
  Receipt Date: 20250507
  Transmission Date: 20250716
  Serious: Yes (Hospitalization)
  Sender: FDA-CTU
  Company Number: None

PATIENT
  Age: 68 Year
  Sex: Female

DRUGS (1)
  1. SKYRIZI [Suspect]
     Active Substance: RISANKIZUMAB-RZAA
     Indication: Psoriatic arthropathy

REACTIONS (11)
  - Psoriasis [None]
  - Disease recurrence [None]
  - Therapeutic product effect incomplete [None]
  - Rash pustular [None]
  - Candida infection [None]
  - Therapy interrupted [None]
  - Diabetic foot [None]
  - Skin ulcer [None]
  - Back pain [None]
  - Pain in extremity [None]
  - Erythema [None]
